FAERS Safety Report 13826530 (Version 1)
Quarter: 2017Q3

REPORT INFORMATION
  Report Type: Spontaneous
  Country: US (occurrence: US)
  Receive Date: 20170802
  Receipt Date: 20170802
  Transmission Date: 20171127
  Serious: No
  Sender: FDA-Public Use
  Company Number: US-ROCHE-630952

PATIENT
  Sex: Female
  Weight: 82.1 kg

DRUGS (3)
  1. LIPITOR [Concomitant]
     Active Substance: ATORVASTATIN CALCIUM
     Indication: BLOOD CHOLESTEROL INCREASED
     Dosage: FREQUENCY: QD
     Route: 048
  2. BONIVA [Suspect]
     Active Substance: IBANDRONATE SODIUM
     Indication: MENOPAUSE
     Dosage: DOSE: 150
     Route: 048
  3. DIOVAN [Concomitant]
     Active Substance: VALSARTAN
     Indication: HYPERTENSION
     Dosage: FREQUENCY: QD
     Route: 048

REACTIONS (3)
  - Chills [Recovered/Resolved]
  - Bone pain [Recovered/Resolved]
  - Pyrexia [Recovered/Resolved]
